FAERS Safety Report 7413696-7 (Version None)
Quarter: 2011Q2

REPORT INFORMATION
  Report Type: 
  Country: None (occurrence: None)
  Receive Date: 20110413
  Receipt Date: 20110331
  Transmission Date: 20111010
  Serious: Yes (Hospitalization)
  Sender: FDA-Public Use
  Company Number: JP-ROCHE-769977

PATIENT
  Sex: Female

DRUGS (3)
  1. AVASTIN [Suspect]
     Indication: COLON CANCER
     Route: 041
     Dates: start: 20091225
  2. ELPLAT [Concomitant]
     Dosage: DOSAGE UNCERTAIN
     Route: 041
  3. XELODA [Suspect]
     Indication: COLON CANCER
     Route: 048
     Dates: start: 20091202, end: 20091216

REACTIONS (1)
  - ANAPHYLACTIC REACTION [None]
